FAERS Safety Report 10713865 (Version 1)
Quarter: 2015Q1

REPORT INFORMATION
  Report Type: Spontaneous
  Country: CA (occurrence: CA)
  Receive Date: 20150115
  Receipt Date: 20150115
  Transmission Date: 20150721
  Serious: Yes (Death, Hospitalization, Other)
  Sender: FDA-Public Use
  Company Number: CA-BAUSCH-BL-2015-000573

PATIENT
  Age: 34 Year
  Sex: Male

DRUGS (2)
  1. OXYCODONE [Suspect]
     Active Substance: OXYCODONE
     Indication: PRODUCT USED FOR UNKNOWN INDICATION
  2. WELLBUTRIN [Suspect]
     Active Substance: BUPROPION HYDROCHLORIDE
     Indication: PRODUCT USED FOR UNKNOWN INDICATION

REACTIONS (13)
  - Unresponsive to stimuli [Fatal]
  - Drug dependence [Fatal]
  - Incorrect route of drug administration [Fatal]
  - Loss of consciousness [Fatal]
  - Somnolence [Fatal]
  - Pulse absent [Fatal]
  - Coma [Fatal]
  - Feeling abnormal [Fatal]
  - Snoring [Fatal]
  - Toxicity to various agents [Fatal]
  - Drug abuse [Fatal]
  - Secretion discharge [Fatal]
  - Pneumonia [Fatal]
